FAERS Safety Report 7312954-4 (Version None)
Quarter: 2011Q1

REPORT INFORMATION
  Report Type: 
  Country: None (occurrence: None)
  Receive Date: 20110224
  Receipt Date: 20110211
  Transmission Date: 20110831
  Serious: Yes (Other)
  Sender: FDA-Public Use
  Company Number: FR-GENENTECH-314178

PATIENT
  Age: 77 Year
  Sex: Male

DRUGS (6)
  1. RANIBIZUMAB [Suspect]
     Indication: MACULAR DEGENERATION
     Route: 031
  2. RANIBIZUMAB [Suspect]
     Route: 031
  3. AMLODIPINE [Concomitant]
     Indication: PRODUCT USED FOR UNKNOWN INDICATION
  4. RAMIPRIL [Concomitant]
     Indication: PRODUCT USED FOR UNKNOWN INDICATION
  5. RANIBIZUMAB [Suspect]
     Route: 031
  6. RANIBIZUMAB [Suspect]
     Route: 031

REACTIONS (2)
  - NEPHROPATHY TOXIC [None]
  - MICROANGIOPATHIC HAEMOLYTIC ANAEMIA [None]
